FAERS Safety Report 20893852 (Version 1)
Quarter: 2022Q2

REPORT INFORMATION
  Report Type: Spontaneous
  Country: US (occurrence: None)
  Receive Date: 20220527
  Receipt Date: 20220527
  Transmission Date: 20220720
  Serious: No
  Sender: FDA-Public Use
  Company Number: None

PATIENT
  Sex: Male

DRUGS (1)
  1. SKYRIZI [Suspect]
     Active Substance: RISANKIZUMAB-RZAA
     Indication: Psoriasis
     Dosage: OTHER FREQUENCY : EVERY12WEEKS;?
     Route: 042
     Dates: start: 20211008

REACTIONS (5)
  - Drug ineffective [None]
  - Wrong schedule [None]
  - Fear of injection [None]
  - Inappropriate schedule of product administration [None]
  - Wrong technique in product usage process [None]
